FAERS Safety Report 10975453 (Version 2)
Quarter: 2015Q2

REPORT INFORMATION
  Report Type: Spontaneous
  Country: JP (occurrence: JP)
  Receive Date: 20150401
  Receipt Date: 20150506
  Transmission Date: 20150821
  Serious: Yes (Hospitalization, Other)
  Sender: FDA-Public Use
  Company Number: JP-BRISTOL-MYERS SQUIBB COMPANY-BMS-2015-001703

PATIENT
  Age: 55 Year
  Sex: Male
  Weight: 76 kg

DRUGS (4)
  1. ERBITUX [Suspect]
     Active Substance: CETUXIMAB
     Dosage: 250 MG/M2, QWK
     Route: 041
     Dates: end: 20141020
  2. DOCETAXEL. [Suspect]
     Active Substance: DOCETAXEL
     Indication: TONGUE NEOPLASM MALIGNANT STAGE UNSPECIFIED
     Dosage: 60 MG/M2, QWK
     Route: 013
     Dates: start: 20140910, end: 20141003
  3. ERBITUX [Suspect]
     Active Substance: CETUXIMAB
     Indication: TONGUE NEOPLASM MALIGNANT STAGE UNSPECIFIED
     Dosage: 400 MG/M2, QWK
     Route: 041
     Dates: start: 20140901, end: 20140901
  4. CISPLATIN. [Suspect]
     Active Substance: CISPLATIN
     Indication: TONGUE NEOPLASM MALIGNANT STAGE UNSPECIFIED
     Dosage: 5 MG/M2, 5 TIMES/WK
     Route: 013
     Dates: start: 20140910, end: 20141003

REACTIONS (6)
  - Sepsis [Recovering/Resolving]
  - Interstitial lung disease [Recovering/Resolving]
  - Pneumonia staphylococcal [Unknown]
  - Acute kidney injury [Recovering/Resolving]
  - Device related infection [Recovering/Resolving]
  - Shock [Recovering/Resolving]

NARRATIVE: CASE EVENT DATE: 20141005
